FAERS Safety Report 11223960 (Version 3)
Quarter: 2015Q3

REPORT INFORMATION
  Report Type: Report from Study
  Country: JP (occurrence: JP)
  Receive Date: 20150629
  Receipt Date: 20150807
  Transmission Date: 20151125
  Serious: Yes (Other)
  Sender: FDA-Public Use
  Company Number: JP-ROCHE-1597447

PATIENT

DRUGS (5)
  1. RITUXIMAB [Suspect]
     Active Substance: RITUXIMAB
     Indication: DIFFUSE LARGE B-CELL LYMPHOMA
     Route: 042
  2. PREDNISOLONE. [Suspect]
     Active Substance: PREDNISOLONE
     Indication: DIFFUSE LARGE B-CELL LYMPHOMA
     Dosage: 50 MG/M2, DAY 1-5
     Route: 048
  3. DOXORUBICIN [Suspect]
     Active Substance: DOXORUBICIN
     Indication: DIFFUSE LARGE B-CELL LYMPHOMA
     Dosage: DAY 1, 2
     Route: 042
  4. CYCLOPHOSPHAMIDE. [Suspect]
     Active Substance: CYCLOPHOSPHAMIDE
     Indication: DIFFUSE LARGE B-CELL LYMPHOMA
     Dosage: DAY 1, 2
     Route: 042
  5. VINCRISTINE [Suspect]
     Active Substance: VINCRISTINE
     Indication: DIFFUSE LARGE B-CELL LYMPHOMA
     Dosage: (MAXIMUM 2.0 MG/BODY), DAY 1]
     Route: 042

REACTIONS (18)
  - Candida pneumonia [Unknown]
  - Herpes zoster [Unknown]
  - Small intestinal perforation [Unknown]
  - Neutropenia [Unknown]
  - Systemic candida [Unknown]
  - Prostate cancer [Unknown]
  - Febrile neutropenia [Unknown]
  - Stomatitis [Unknown]
  - Nausea [Unknown]
  - Pneumocystis jirovecii pneumonia [Unknown]
  - Thrombocytopenia [Unknown]
  - Anaemia [Unknown]
  - Lung infection [Unknown]
  - Neuropathy peripheral [Unknown]
  - Sepsis [Unknown]
  - Cardiac failure [Unknown]
  - Blood creatinine increased [Unknown]
  - Diarrhoea [Unknown]
